FAERS Safety Report 5236511-9 (Version None)
Quarter: 2007Q1

REPORT INFORMATION
  Report Type: 
  Country: None (occurrence: None)
  Receive Date: 20070212
  Receipt Date: 20070207
  Transmission Date: 20070707
  Serious: Yes (Other)
  Sender: FDA-Public Use
  Company Number: JP-MERCK-0702USA01280

PATIENT
  Age: 85 Year
  Sex: Female
  Weight: 80 kg

DRUGS (9)
  1. FOSAMAX [Suspect]
     Indication: OSTEOPOROSIS
     Route: 048
     Dates: start: 20061206, end: 20070131
  2. TRIAZOLAM [Concomitant]
     Route: 048
     Dates: start: 19980529
  3. SELECTOL [Concomitant]
     Route: 048
     Dates: start: 19980529
  4. ALFACALCIDOL [Concomitant]
     Route: 048
     Dates: start: 19980529
  5. MEXILETINE HYDROCHLORIDE [Concomitant]
     Route: 048
     Dates: start: 19980529
  6. LIPITOR [Concomitant]
     Route: 048
     Dates: start: 19980529
  7. ADEFURONIC [Concomitant]
     Route: 048
     Dates: start: 19980529
  8. EPERISONE HYDROCHLORIDE [Concomitant]
     Route: 048
     Dates: start: 19980529
  9. NU-LOTAN [Concomitant]
     Route: 048
     Dates: start: 19980529

REACTIONS (3)
  - GLOSSITIS [None]
  - JAUNDICE [None]
  - STOMATITIS [None]
